FAERS Safety Report 10340213 (Version 5)
Quarter: 2015Q1

REPORT INFORMATION
  Report Type: Report from Study
  Country: FR (occurrence: FR)
  Receive Date: 20140724
  Receipt Date: 20150327
  Transmission Date: 20150720
  Serious: Yes (Other)
  Sender: FDA-Public Use
  Company Number: FR-BRISTOL-MYERS SQUIBB COMPANY-21212477

PATIENT
  Sex: Female
  Weight: 2.88 kg

DRUGS (7)
  1. REYATAZ [Suspect]
     Active Substance: ATAZANAVIR SULFATE
     Indication: ANTIRETROVIRAL THERAPY
     Dosage: 300 MG/KG/HR
     Route: 064
     Dates: start: 20130424
  2. SERTACONAZOLE [Suspect]
     Active Substance: SERTACONAZOLE
     Indication: PRODUCT USED FOR UNKNOWN INDICATION
     Route: 064
  3. TRUVADA [Suspect]
     Active Substance: EMTRICITABINE\TENOFOVIR DISOPROXIL FUMARATE
     Indication: ANTIRETROVIRAL THERAPY
     Dosage: 1 DF, QD 1 UNIT NOS
     Route: 064
     Dates: start: 20130424
  4. ONDANSETRON [Suspect]
     Active Substance: ONDANSETRON
     Indication: PRODUCT USED FOR UNKNOWN INDICATION
     Route: 064
  5. NORVIR [Suspect]
     Active Substance: RITONAVIR
     Indication: ANTIRETROVIRAL THERAPY
     Dosage: 100 MG, QD
     Route: 064
     Dates: start: 20130424
  6. METOCLOPRAMIDE. [Suspect]
     Active Substance: METOCLOPRAMIDE
     Indication: ANTIRETROVIRAL THERAPY
     Route: 064
  7. ESOMEPRAZOLE [Suspect]
     Active Substance: ESOMEPRAZOLE
     Indication: PRODUCT USED FOR UNKNOWN INDICATION
     Route: 064

REACTIONS (3)
  - Congenital central nervous system anomaly [Unknown]
  - Epilepsy congenital [Unknown]
  - Foetal exposure during pregnancy [Unknown]
